FAERS Safety Report 9715811 (Version 5)
Quarter: 2014Q2

REPORT INFORMATION
  Report Type: Report from Study
  Country: DE (occurrence: DE)
  Receive Date: 20131127
  Receipt Date: 20140625
  Transmission Date: 20141212
  Serious: Yes (Hospitalization, Other)
  Sender: FDA-Public Use
  Company Number: DE-ROCHE-1307720

PATIENT
  Age: 66 Year
  Sex: Female
  Weight: 75.8 kg

DRUGS (18)
  1. BEVACIZUMAB [Suspect]
     Indication: OVARIAN CANCER METASTATIC
     Dosage: DATE OF LAST DOSE PRIOR TO SAE WAS 11/DEC/2013
     Route: 042
     Dates: start: 20131111
  2. BEVACIZUMAB [Suspect]
     Indication: BREAST CANCER
  3. PACLITAXEL [Suspect]
     Indication: OVARIAN CANCER METASTATIC
     Route: 042
     Dates: start: 20131113, end: 20131113
  4. PACLITAXEL [Suspect]
     Indication: BREAST CANCER
     Route: 042
     Dates: start: 20131211, end: 20131211
  5. PACLITAXEL [Suspect]
     Route: 042
     Dates: start: 20140116, end: 20140116
  6. PACLITAXEL [Suspect]
     Route: 042
     Dates: start: 20140206, end: 20140206
  7. PACLITAXEL [Suspect]
     Route: 042
     Dates: start: 20140227, end: 20140227
  8. PACLITAXEL [Suspect]
     Route: 042
     Dates: start: 20140320, end: 20140320
  9. CARBOPLATIN [Suspect]
     Indication: OVARIAN CANCER METASTATIC
     Route: 042
     Dates: start: 20131113, end: 20131113
  10. CARBOPLATIN [Suspect]
     Indication: BREAST CANCER
     Route: 042
     Dates: start: 20131211, end: 20131211
  11. CARBOPLATIN [Suspect]
     Route: 042
     Dates: start: 20140116, end: 20140116
  12. CARBOPLATIN [Suspect]
     Route: 042
     Dates: start: 20140206, end: 20140206
  13. CARBOPLATIN [Suspect]
     Route: 042
     Dates: start: 20140227, end: 20140227
  14. CARBOPLATIN [Suspect]
     Route: 042
     Dates: start: 20140320, end: 20140320
  15. BISOPROLOL [Concomitant]
     Indication: HYPERTENSION
     Dosage: 5 MG IN THE MORNING, 10 MG IN THE EVENING PER DAY
     Route: 048
  16. HCTZ [Concomitant]
     Indication: HYPERTENSION
     Route: 048
  17. METFORMIN [Concomitant]
     Indication: TYPE 2 DIABETES MELLITUS
     Route: 048
  18. SIMVASTATIN [Concomitant]
     Route: 048

REACTIONS (5)
  - Renal failure acute [Recovered/Resolved]
  - Urinary tract infection [Recovered/Resolved]
  - Dehydration [Recovered/Resolved]
  - Vomiting [Recovered/Resolved]
  - Urinary tract infection [Recovered/Resolved]
